FAERS Safety Report 7381601-8 (Version None)
Quarter: 2011Q1

REPORT INFORMATION
  Report Type: 
  Country: None (occurrence: None)
  Receive Date: 20110329
  Receipt Date: 20110328
  Transmission Date: 20110831
  Serious: Yes (Other)
  Sender: FDA-Public Use
  Company Number: ES-ABBOTT-11P-144-0710907-00

PATIENT
  Sex: Female

DRUGS (2)
  1. HUMIRA [Suspect]
  2. HUMIRA [Suspect]
     Indication: CROHN'S DISEASE
     Route: 058
     Dates: start: 20101201, end: 20110101

REACTIONS (5)
  - BONE MARROW OEDEMA [None]
  - DIZZINESS [None]
  - BACK PAIN [None]
  - SPINAL FRACTURE [None]
  - GASTRIC DISORDER [None]
